FAERS Safety Report 5031516-5 (Version None)
Quarter: 2006Q2

REPORT INFORMATION
  Report Type: 
  Country: None (occurrence: None)
  Receive Date: 20060616
  Receipt Date: 20060605
  Transmission Date: 20061013
  Serious: Yes (Death)
  Sender: FDA-Public Use
  Company Number: 2006VX000034

PATIENT
  Age: 60 Year
  Sex: Male

DRUGS (8)
  1. INTERFERON ALFACON-1 [Suspect]
     Indication: HEPATITIS C
     Dosage: 15 UG; QD; SC
     Route: 058
     Dates: start: 20051215
  2. RIBAVIRIN [Concomitant]
  3. KALETRA [Concomitant]
  4. TRUVADA [Concomitant]
  5. ARANESP [Concomitant]
  6. ENTEX PSE [Concomitant]
  7. CLARITIN [Concomitant]
  8. TYLENOL (CAPLET) [Concomitant]

REACTIONS (9)
  - ANAEMIA [None]
  - ASCITES [None]
  - BALANCE DISORDER [None]
  - DIARRHOEA [None]
  - DIZZINESS [None]
  - INJECTION SITE HAEMORRHAGE [None]
  - INJECTION SITE PAIN [None]
  - INJECTION SITE REACTION [None]
  - OEDEMA PERIPHERAL [None]
